FAERS Safety Report 13931840 (Version 1)
Quarter: 2017Q3

REPORT INFORMATION
  Report Type: Report from Study
  Country: US (occurrence: US)
  Receive Date: 20170904
  Receipt Date: 20170904
  Transmission Date: 20171127
  Serious: No
  Sender: FDA-Public Use
  Company Number: US-AEGERION PHARMACEUTICAL, INC-AEGR003318

PATIENT
  Sex: Female

DRUGS (2)
  1. MYALEPT [Suspect]
     Active Substance: METRELEPTIN
     Dosage: UNK
  2. MYALEPT [Suspect]
     Active Substance: METRELEPTIN
     Indication: CONGENITAL GENERALISED LIPODYSTROPHY
     Dosage: UNK

REACTIONS (8)
  - Hepatic steatosis [Recovering/Resolving]
  - Glycosylated haemoglobin increased [Recovering/Resolving]
  - Depression [Unknown]
  - Treatment noncompliance [Unknown]
  - Therapy cessation [Recovered/Resolved]
  - Transaminases increased [Unknown]
  - Gastrointestinal disorder [Unknown]
  - Menstruation irregular [Unknown]
